FAERS Safety Report 12177577 (Version 6)
Quarter: 2020Q4

REPORT INFORMATION
  Report Type: Spontaneous
  Country: US (occurrence: US)
  Receive Date: 20160314
  Receipt Date: 20201224
  Transmission Date: 20210113
  Serious: Yes (Hospitalization)
  Sender: FDA-Public Use
  Company Number: US-PFIZER INC-2016151388

PATIENT
  Age: 74 Year
  Sex: Female

DRUGS (1)
  1. LYRICA [Suspect]
     Active Substance: PREGABALIN
     Indication: NEUROPATHY PERIPHERAL
     Dosage: 75 MG, 3X/DAY
     Dates: start: 2006

REACTIONS (5)
  - Hypoacusis [Recovered/Resolved]
  - Memory impairment [Unknown]
  - Dysgraphia [Recovered/Resolved]
  - Intestinal obstruction [Recovered/Resolved]
  - Upper respiratory tract infection [Recovered/Resolved]
